FAERS Safety Report 13563632 (Version 3)
Quarter: 2017Q2

REPORT INFORMATION
  Report Type: Report from Study
  Country: GB (occurrence: GB)
  Receive Date: 20170519
  Receipt Date: 20170530
  Transmission Date: 20170830
  Serious: Yes (Death)
  Sender: FDA-Public Use
  Company Number: GB-ROCHE-1936842

PATIENT
  Age: 69 Year
  Sex: Female

DRUGS (2)
  1. CARBOPLATIN. [Suspect]
     Active Substance: CARBOPLATIN
     Indication: NON-SMALL CELL LUNG CANCER STAGE IV
     Dosage: IV INFUSION OF CARBOPLATIN ON DAY 1 Q3W FOR 4 OR 6 CYCLES (CYCLE LENGTH=21 DAYS) IN INDUCTION DOSING
     Route: 042
  2. PEMETREXED. [Suspect]
     Active Substance: PEMETREXED
     Indication: NON-SMALL CELL LUNG CANCER STAGE IV
     Dosage: IV INFUSION OF 500 MG/M^2 PEMETREXED ON DAY 1 Q3W FOR 4 OR 6 CYCLES (CYCLE LENGTH=21 DAYS) IN INDUCT
     Route: 042

REACTIONS (1)
  - Disease progression [Fatal]
